FAERS Safety Report 8807140 (Version 1)
Quarter: 2012Q4

REPORT INFORMATION
  Report Type: 
  Country: BO (occurrence: BO)
  Receive Date: 20120925
  Receipt Date: 20120925
  Transmission Date: 20130627
  Serious: Yes (Death, Other)
  Sender: FDA-Public Use
  Company Number: PHHO2006BO02883

PATIENT
  Sex: Female

DRUGS (2)
  1. GLIVEC [Suspect]
     Indication: CHRONIC MYELOID LEUKAEMIA
     Dosage: 400 mg, QD
     Route: 048
     Dates: start: 20050510, end: 20050608
  2. MELPHALAN [Concomitant]

REACTIONS (5)
  - Death [Fatal]
  - Bone marrow failure [Recovered/Resolved]
  - Neutropenia [Unknown]
  - Aplastic anaemia [Recovered/Resolved]
  - Pancytopenia [Recovered/Resolved]
